FAERS Safety Report 6918106-1 (Version None)
Quarter: 2010Q3

REPORT INFORMATION
  Report Type: 
  Country: None (occurrence: None)
  Receive Date: 20100806
  Receipt Date: 20100721
  Transmission Date: 20110219
  Serious: Yes (Life-Threatening)
  Sender: FDA-Public Use
  Company Number: CTI_01196_2010

PATIENT
  Sex: Male

DRUGS (14)
  1. CUROSURF [Suspect]
     Indication: NEONATAL RESPIRATORY DISTRESS SYNDROME
     Dosage: (240 MG QD ENDOTRACHEAL)
     Route: 007
     Dates: start: 20100424, end: 20100425
  2. AMPICILLIN SODIUM [Concomitant]
  3. CEFOTAXIME SODIUM [Concomitant]
  4. THEOPHYLLINE [Concomitant]
  5. FUROSEMIDE [Concomitant]
  6. ETOMIDATE [Concomitant]
  7. ROCURONIUM BROMIDE [Concomitant]
  8. ATROPINE [Concomitant]
  9. MSI [Concomitant]
  10. CALCIUM [Concomitant]
  11. PHENOBARBITAL [Concomitant]
  12. GENTAMICIN [Concomitant]
  13. HEPARIN [Concomitant]
  14. MIDAZOLAM HCL [Concomitant]

REACTIONS (5)
  - APNOEA [None]
  - BRADYCARDIA [None]
  - CEREBRAL HAEMORRHAGE [None]
  - PNEUMOTHORAX [None]
  - PULMONARY HAEMORRHAGE [None]
